FAERS Safety Report 7718780-6 (Version None)
Quarter: 2011Q3

REPORT INFORMATION
  Report Type: 
  Country: None (occurrence: None)
  Receive Date: 20110830
  Receipt Date: 20110828
  Transmission Date: 20111222
  Serious: Yes (Hospitalization)
  Sender: FDA-Public Use
  Company Number: US-PFIZER INC-2011200304

PATIENT
  Sex: Female

DRUGS (1)
  1. TIKOSYN [Suspect]
     Dosage: UNK, 2X/DAY

REACTIONS (8)
  - HEADACHE [None]
  - PAIN IN EXTREMITY [None]
  - BLOOD PRESSURE INADEQUATELY CONTROLLED [None]
  - CHEST DISCOMFORT [None]
  - NAUSEA [None]
  - BLOOD PRESSURE INCREASED [None]
  - HEART RATE INCREASED [None]
  - HYPERHIDROSIS [None]
